FAERS Safety Report 4786233-3 (Version None)
Quarter: 2005Q3

REPORT INFORMATION
  Report Type: 
  Country: None (occurrence: None)
  Receive Date: 20050930
  Receipt Date: 20050713
  Transmission Date: 20060218
  Serious: Yes (Death)
  Sender: FDA-Public Use
  Company Number: DSA_27127_2005

PATIENT
  Age: 57 Year

DRUGS (3)
  1. ENALAPRIL [Suspect]
     Dosage: DF; PO
     Route: 048
  2. DOXEPIN HCL [Suspect]
     Dosage: DF, PO
  3. RISPERIDONE [Suspect]
     Dosage: PO

REACTIONS (4)
  - COMPLETED SUICIDE [None]
  - DRUG LEVEL ABOVE THERAPEUTIC [None]
  - INTENTIONAL MISUSE [None]
  - OVERDOSE [None]
